FAERS Safety Report 5478953-2 (Version None)
Quarter: 2007Q4

REPORT INFORMATION
  Report Type: 
  Country: None (occurrence: None)
  Receive Date: 20071006
  Receipt Date: 20070925
  Transmission Date: 20080405
  Serious: Yes (Other)
  Sender: FDA-Public Use
  Company Number: US-PFIZER INC-2007062199

PATIENT
  Sex: Female
  Weight: 96.363 kg

DRUGS (5)
  1. CHANTIX [Suspect]
     Indication: SMOKING CESSATION THERAPY
     Dates: start: 20070801, end: 20070801
  2. AMITRIPTYLINE HCL [Concomitant]
  3. ZOLOFT [Concomitant]
  4. PRILOSEC [Concomitant]
  5. ATENOLOL [Concomitant]

REACTIONS (1)
  - CONDITION AGGRAVATED [None]
